FAERS Safety Report 9146627 (Version 1)
Quarter: 2013Q1

REPORT INFORMATION
  Report Type: Spontaneous
  Country: US (occurrence: US)
  Receive Date: 20130307
  Receipt Date: 20130307
  Transmission Date: 20140127
  Serious: No
  Sender: FDA-Public Use
  Company Number: US-BAYER-2013-028547

PATIENT
  Age: 57 Year
  Sex: Male
  Weight: 83.45 kg

DRUGS (2)
  1. BAYER EXTRA STRENGTH BACK + BODY PAIN [Suspect]
     Indication: ARTHRITIS
     Dosage: 2 DF, QID, TAB
     Route: 048
     Dates: end: 2012
  2. ALEVE CAPLET/TABLET,MIDOL EXTENDED RELIEF CAPLET [Suspect]
     Indication: ARTHRITIS
     Dosage: 2 DF, QD
     Route: 048
     Dates: start: 2012

REACTIONS (2)
  - Drug ineffective [None]
  - Incorrect drug administration duration [None]
